FAERS Safety Report 24186389 (Version 4)
Quarter: 2025Q1

REPORT INFORMATION
  Report Type: Spontaneous
  Country: CA (occurrence: CA)
  Receive Date: 20240808
  Receipt Date: 20250317
  Transmission Date: 20250408
  Serious: Yes (Other)
  Sender: INTERCEPT PHARMACEUTICALS
  Company Number: CA-ADVANZ PHARMA-202407006233

PATIENT
  Age: 64 Year
  Sex: Female

DRUGS (54)
  1. OCALIVA [Suspect]
     Active Substance: OBETICHOLIC ACID
     Indication: Primary biliary cholangitis
     Route: 048
     Dates: start: 20230922
  2. OCALIVA [Suspect]
     Active Substance: OBETICHOLIC ACID
     Route: 048
  3. BEZAFIBRATE [Suspect]
     Active Substance: BEZAFIBRATE
     Indication: Product used for unknown indication
  4. BEZAFIBRATE [Suspect]
     Active Substance: BEZAFIBRATE
  5. URSODIOL [Concomitant]
     Active Substance: URSODIOL
     Dates: start: 20210311
  6. GABAPENTIN [Concomitant]
     Active Substance: GABAPENTIN
  7. GABAPENTIN [Concomitant]
     Active Substance: GABAPENTIN
  8. GABAPENTIN [Concomitant]
     Active Substance: GABAPENTIN
  9. GABAPENTIN [Concomitant]
     Active Substance: GABAPENTIN
  10. GABAPENTIN [Concomitant]
     Active Substance: GABAPENTIN
  11. PERINDOPRIL [Concomitant]
     Active Substance: PERINDOPRIL
  12. PERINDOPRIL [Concomitant]
     Active Substance: PERINDOPRIL
  13. PERINDOPRIL [Concomitant]
     Active Substance: PERINDOPRIL
  14. PERINDOPRIL [Concomitant]
     Active Substance: PERINDOPRIL
  15. PANTOPRAZOLE SODIUM [Concomitant]
     Active Substance: PANTOPRAZOLE SODIUM
  16. PANTOPRAZOLE SODIUM [Concomitant]
     Active Substance: PANTOPRAZOLE SODIUM
  17. PANTOPRAZOLE SODIUM [Concomitant]
     Active Substance: PANTOPRAZOLE SODIUM
  18. PANTOPRAZOLE SODIUM [Concomitant]
     Active Substance: PANTOPRAZOLE SODIUM
  19. DULOXETINE [Concomitant]
     Active Substance: DULOXETINE
  20. DULOXETINE [Concomitant]
     Active Substance: DULOXETINE
  21. DULOXETINE [Concomitant]
     Active Substance: DULOXETINE
  22. DULOXETINE [Concomitant]
     Active Substance: DULOXETINE
  23. DULOXETINE [Concomitant]
     Active Substance: DULOXETINE
  24. ATORVASTATIN [Concomitant]
     Active Substance: ATORVASTATIN
  25. ATORVASTATIN [Concomitant]
     Active Substance: ATORVASTATIN
  26. ATORVASTATIN [Concomitant]
     Active Substance: ATORVASTATIN
  27. ATORVASTATIN [Concomitant]
     Active Substance: ATORVASTATIN
  28. NORTRIPTYLINE [Concomitant]
     Active Substance: NORTRIPTYLINE
  29. NORTRIPTYLINE [Concomitant]
     Active Substance: NORTRIPTYLINE
  30. NORTRIPTYLINE [Concomitant]
     Active Substance: NORTRIPTYLINE
  31. NORTRIPTYLINE [Concomitant]
     Active Substance: NORTRIPTYLINE
  32. NORTRIPTYLINE [Concomitant]
     Active Substance: NORTRIPTYLINE
  33. DOMPERIDONE [Concomitant]
     Active Substance: DOMPERIDONE
  34. DOMPERIDONE [Concomitant]
     Active Substance: DOMPERIDONE
  35. DOMPERIDONE [Concomitant]
     Active Substance: DOMPERIDONE
  36. DOMPERIDONE [Concomitant]
     Active Substance: DOMPERIDONE
  37. DOMPERIDONE [Concomitant]
     Active Substance: DOMPERIDONE
  38. VITAMIN D NOS [Concomitant]
     Active Substance: CHOLECALCIFEROL\ERGOCALCIFEROL
  39. RISEDRONATE SODIUM [Concomitant]
     Active Substance: RISEDRONATE SODIUM
  40. RISEDRONATE SODIUM [Concomitant]
     Active Substance: RISEDRONATE SODIUM
  41. RISEDRONATE SODIUM [Concomitant]
     Active Substance: RISEDRONATE SODIUM
  42. RISEDRONATE SODIUM [Concomitant]
     Active Substance: RISEDRONATE SODIUM
  43. RISEDRONATE SODIUM [Concomitant]
     Active Substance: RISEDRONATE SODIUM
  44. LORAZEPAM [Concomitant]
     Active Substance: LORAZEPAM
  45. LORAZEPAM [Concomitant]
     Active Substance: LORAZEPAM
  46. LORAZEPAM [Concomitant]
     Active Substance: LORAZEPAM
  47. LORAZEPAM [Concomitant]
     Active Substance: LORAZEPAM
  48. LORAZEPAM [Concomitant]
     Active Substance: LORAZEPAM
  49. ALBUTEROL [Concomitant]
     Active Substance: ALBUTEROL
  50. ALBUTEROL [Concomitant]
     Active Substance: ALBUTEROL
  51. ALBUTEROL [Concomitant]
     Active Substance: ALBUTEROL
  52. ALBUTEROL [Concomitant]
     Active Substance: ALBUTEROL
  53. ALBUTEROL [Concomitant]
     Active Substance: ALBUTEROL
  54. VITAMINS [Concomitant]
     Active Substance: VITAMINS

REACTIONS (6)
  - Myocardial infarction [Unknown]
  - Gastrooesophageal reflux disease [Unknown]
  - Depressed mood [Unknown]
  - Chest pain [Unknown]
  - Anxiety [Unknown]
  - Blood alkaline phosphatase increased [Not Recovered/Not Resolved]

NARRATIVE: CASE EVENT DATE: 20240713
